FAERS Safety Report 15263495 (Version 1)
Quarter: 2018Q3

REPORT INFORMATION
  Report Type: Spontaneous
  Country: US (occurrence: US)
  Receive Date: 20180810
  Receipt Date: 20180810
  Transmission Date: 20181010
  Serious: Yes (Death, Hospitalization, Other)
  Sender: FDA-Public Use
  Company Number: US-ASTELLAS-2018US035413

PATIENT
  Sex: Male

DRUGS (1)
  1. XTANDI [Suspect]
     Active Substance: ENZALUTAMIDE
     Indication: PROSTATE CANCER
     Route: 048

REACTIONS (7)
  - Sepsis [Unknown]
  - Malignant neoplasm progression [Fatal]
  - Asthenia [Unknown]
  - Blood calcium increased [Unknown]
  - Kidney infection [Unknown]
  - Blood potassium decreased [Unknown]
  - Cystitis [Unknown]
